FAERS Safety Report 5656991-4 (Version None)
Quarter: 2008Q1

REPORT INFORMATION
  Report Type: 
  Country: None (occurrence: None)
  Receive Date: 20080310
  Receipt Date: 20080229
  Transmission Date: 20080703
  Serious: Yes (Hospitalization)
  Sender: FDA-Public Use
  Company Number: B0511306A

PATIENT
  Age: 78 Year
  Sex: Male

DRUGS (10)
  1. AVODART [Suspect]
     Indication: DRUG USE FOR UNKNOWN INDICATION
     Dosage: .5MG PER DAY
     Route: 048
  2. NEXIUM [Concomitant]
     Route: 065
  3. ATACAND [Concomitant]
     Route: 065
  4. FOSAMAX [Concomitant]
     Route: 065
  5. NORVASC [Concomitant]
     Route: 065
  6. WARAN [Concomitant]
     Route: 065
  7. ISOPTO-PILOCARPINE [Concomitant]
     Route: 047
  8. PREDNISOLONE [Concomitant]
     Route: 065
  9. IBUMETIN [Concomitant]
     Route: 065
  10. CITODON [Concomitant]
     Route: 065

REACTIONS (4)
  - CHEST PAIN [None]
  - DYSPNOEA [None]
  - FATIGUE [None]
  - SENSORY DISTURBANCE [None]
